FAERS Safety Report 7927071-X (Version None)
Quarter: 2011Q4

REPORT INFORMATION
  Report Type: 
  Country: None (occurrence: None)
  Receive Date: 20111116
  Receipt Date: 20111110
  Transmission Date: 20120403
  Serious: Yes (Death, Life-Threatening, Hospitalization, Other)
  Sender: FDA-Public Use
  Company Number: AE-11-017

PATIENT
  Age: 20 Year
  Sex: Male

DRUGS (6)
  1. TRICYCLIC ANTIDEPRESSANTS [Concomitant]
  2. ACETAMINOPHEN [Concomitant]
  3. IRON [Concomitant]
  4. ERYTHROMYCIN [Concomitant]
  5. LOPERAMIDE HCL [Concomitant]
  6. AMOXICILLIN [Suspect]

REACTIONS (15)
  - HEPATIC FAILURE [None]
  - BRAIN HERNIATION [None]
  - INFECTION [None]
  - SEPSIS [None]
  - LIVER INJURY [None]
  - BLOOD IRON INCREASED [None]
  - CHOLESTASIS [None]
  - DISEASE COMPLICATION [None]
  - MULTIPLE DRUG OVERDOSE INTENTIONAL [None]
  - BRAIN OEDEMA [None]
  - TOXICITY TO VARIOUS AGENTS [None]
  - AMMONIA INCREASED [None]
  - HEPATIC NECROSIS [None]
  - SUICIDE ATTEMPT [None]
  - PUPILLARY DISORDER [None]
